FAERS Safety Report 20947947 (Version 1)
Quarter: 2022Q2

REPORT INFORMATION
  Report Type: Report from Study
  Country: US (occurrence: US)
  Receive Date: 20220611
  Receipt Date: 20220611
  Transmission Date: 20220721
  Serious: Yes (Hospitalization)
  Sender: FDA-Public Use
  Company Number: US-ABBVIE-22K-163-4427187-00

PATIENT
  Age: 51 Year
  Sex: Male

DRUGS (3)
  1. VENCLEXTA [Suspect]
     Active Substance: VENETOCLAX
     Indication: B-cell small lymphocytic lymphoma
     Dosage: TAKE 1 TABLET(50MG) BY MOUTH DAILY WITH FOOD AND WATER FOR DAYS 1 AND 2
     Route: 048
  2. VENCLEXTA [Suspect]
     Active Substance: VENETOCLAX
     Dosage: 2 TABLETS(100MG) DAILY FOR DAY 3 AND DAY 4
     Route: 048
  3. VENCLEXTA [Suspect]
     Active Substance: VENETOCLAX
     Dosage: TAKE 2 TABLETS BY MOUTH DAILY WITH FOOD AND WATER DAY 5 THROUGH 28
     Route: 048

REACTIONS (3)
  - Platelet count abnormal [Unknown]
  - Epistaxis [Unknown]
  - Stomatitis [Unknown]

NARRATIVE: CASE EVENT DATE: 20220604
